FAERS Safety Report 9325527 (Version 1)
Quarter: 2013Q2

REPORT INFORMATION
  Report Type: Spontaneous
  Country: US (occurrence: None)
  Receive Date: 20130531
  Receipt Date: 20130531
  Transmission Date: 20140414
  Serious: No
  Sender: FDA-Public Use
  Company Number: None

PATIENT
  Age: 65 Year
  Sex: Female
  Weight: 68.49 kg

DRUGS (5)
  1. ALEVE [Suspect]
     Indication: PAIN IN EXTREMITY
     Dosage: 2 PILLS  TWICE DAILY  BY MOUTH
     Route: 048
     Dates: start: 20130415, end: 20130529
  2. CELEXA [Concomitant]
  3. SYNTHYROID [Concomitant]
  4. CYTOMEL [Concomitant]
  5. MULTIVITS [Concomitant]

REACTIONS (2)
  - Blood urine [None]
  - Cystitis [None]
